FAERS Safety Report 5901536-4 (Version None)
Quarter: 2008Q3

REPORT INFORMATION
  Report Type: 
  Country: None (occurrence: None)
  Receive Date: 20080925
  Receipt Date: 20080924
  Transmission Date: 20090109
  Serious: Yes (Other)
  Sender: FDA-Public Use
  Company Number: 2008SP014949

PATIENT
  Age: 69 Year
  Sex: Male
  Weight: 61 kg

DRUGS (7)
  1. PEG-INTRON [Suspect]
     Indication: HEPATITIS C
     Dosage: 100 MCG; QW; SC
     Route: 058
     Dates: start: 20071113
  2. REBETOL [Suspect]
     Indication: HEPATITIS C
     Dosage: 400 MG; QD; PO
     Route: 048
     Dates: start: 20071113
  3. MICARDIS [Concomitant]
  4. AMARYL [Concomitant]
  5. SEIBULE [Concomitant]
  6. URSO 250 [Concomitant]
  7. MUCOSTA [Concomitant]

REACTIONS (2)
  - INJECTION SITE CELLULITIS [None]
  - SKIN ULCER [None]
